FAERS Safety Report 5020320-X (Version None)
Quarter: 2006Q2

REPORT INFORMATION
  Report Type: 
  Country: None (occurrence: None)
  Receive Date: 20060602
  Receipt Date: 20060524
  Transmission Date: 20061013
  Serious: Yes (Hospitalization)
  Sender: FDA-Public Use
  Company Number: 2006-05-1849

PATIENT
  Age: 43 Year
  Sex: Female
  Weight: 58 kg

DRUGS (4)
  1. REBETOL [Suspect]
     Indication: HEPATITIS C
     Dosage: 1000 MG QD
     Dates: start: 20050501, end: 20060222
  2. PEGASYS [Suspect]
     Indication: HEPATITIS C
     Dosage: QWK SUBCUTANEOUS
     Route: 058
     Dates: start: 20050501, end: 20060222
  3. CORTANCYL [Concomitant]
  4. PLAQUENIL [Concomitant]

REACTIONS (4)
  - BRONCHIOLITIS [None]
  - BRONCHITIS [None]
  - EMPHYSEMA [None]
  - PRODUCTIVE COUGH [None]
